FAERS Safety Report 18633340 (Version 1)
Quarter: 2020Q4

REPORT INFORMATION
  Report Type: Spontaneous
  Country: US (occurrence: US)
  Receive Date: 20201217
  Receipt Date: 20201217
  Transmission Date: 20210114
  Serious: Yes (Hospitalization)
  Sender: FDA-Public Use
  Company Number: None

PATIENT
  Age: 85 Year
  Sex: Female
  Weight: 65 kg

DRUGS (24)
  1. NORMAL SALINE [Concomitant]
     Active Substance: SODIUM CHLORIDE
  2. CYANOCOBALAMIN. [Concomitant]
     Active Substance: CYANOCOBALAMIN
  3. FLUTICASONE PROPIONATE. [Concomitant]
     Active Substance: FLUTICASONE PROPIONATE
  4. MIRALAX [Concomitant]
     Active Substance: POLYETHYLENE GLYCOL 3350
  5. NAMENDA XR [Concomitant]
     Active Substance: MEMANTINE HYDROCHLORIDE
  6. BAMLANIVIMAB. [Suspect]
     Active Substance: BAMLANIVIMAB
     Indication: COVID-19
     Route: 042
     Dates: start: 20201210, end: 20201210
  7. FOLIC ACID. [Concomitant]
     Active Substance: FOLIC ACID
  8. LACTOBACILLUS ACIDOPHILUS\LACTOBACILLUS BULGARICUS [Concomitant]
     Active Substance: LACTOBACILLUS ACIDOPHILUS\LACTOBACILLUS DELBRUECKII SUBSP. BULGARICUS
  9. MEGESTROL ACETATE. [Concomitant]
     Active Substance: MEGESTROL ACETATE
  10. VITAMIN B COMPLEX [Concomitant]
     Active Substance: CYANOCOBALAMIN\DEXPANTHENOL\NIACINAMIDE\PYRIDOXINE HYDROCHLORIDE\RIBOFLAVIN 5^-PHOSPHATE SODIUM\THIAMINE HYDROCHLORIDE\VITAMIN B COMPLEX
  11. DEPAKOTE [Concomitant]
     Active Substance: DIVALPROEX SODIUM
  12. DOCCUSATE SODIUM [Concomitant]
  13. ZOLOFT [Concomitant]
     Active Substance: SERTRALINE HYDROCHLORIDE
  14. ASPIRIN 81 [Concomitant]
     Active Substance: ASPIRIN
  15. MOBIC [Concomitant]
     Active Substance: MELOXICAM
  16. MUCINEX EXTENDED RELEASE [Concomitant]
  17. DEXAMETHASONE. [Concomitant]
     Active Substance: DEXAMETHASONE
  18. MACROBID [Concomitant]
     Active Substance: NITROFURANTOIN\NITROFURANTOIN MONOHYDRATE
  19. OCUVITE [Concomitant]
     Active Substance: VITAMINS
  20. PYRIDIUM [Concomitant]
     Active Substance: PHENAZOPYRIDINE
  21. SINGULAIR [Concomitant]
     Active Substance: MONTELUKAST SODIUM
  22. VITAMIN C [Concomitant]
     Active Substance: ASCORBIC ACID
  23. ZINC SULFATE. [Concomitant]
     Active Substance: ZINC SULFATE
  24. DIVALPROEX [Concomitant]
     Active Substance: DIVALPROEX SODIUM

REACTIONS (12)
  - Mental status changes [None]
  - Confusional state [None]
  - Pallor [None]
  - Malaise [None]
  - Dyspnoea [None]
  - Hypoxia [None]
  - Electrolyte imbalance [None]
  - Oxygen saturation decreased [None]
  - Urine analysis abnormal [None]
  - Aggression [None]
  - Blood lactic acid increased [None]
  - Dysarthria [None]

NARRATIVE: CASE EVENT DATE: 20201210
